FAERS Safety Report 8604489 (Version 3)
Quarter: 2014Q2

REPORT INFORMATION
  Report Type: Spontaneous
  Country: GB (occurrence: GB)
  Receive Date: 20120608
  Receipt Date: 20140630
  Transmission Date: 20141212
  Serious: Yes (Hospitalization)
  Sender: FDA-Public Use
  Company Number: PHFR2012GB003317

PATIENT
  Age: 51 Year
  Sex: Female

DRUGS (3)
  1. CLOZARIL [Suspect]
     Indication: SCHIZOPHRENIA
     Dosage: 300 MG, DAILY
     Route: 048
     Dates: start: 20111005
  2. HYOSCINE [Concomitant]
     Dosage: 300 UG, DAILY
  3. SODIUM VALPROATE [Concomitant]
     Dosage: 1400 MG, DAILY
     Route: 048

REACTIONS (5)
  - Chronic obstructive pulmonary disease [Recovered/Resolved]
  - Dyspnoea [Unknown]
  - Pneumonia [Unknown]
  - Diarrhoea [Unknown]
  - Vomiting [Unknown]
